FAERS Safety Report 9005515 (Version 6)
Quarter: 2014Q3

REPORT INFORMATION
  Report Type: Spontaneous
  Country: US (occurrence: US)
  Receive Date: 20130109
  Receipt Date: 20140701
  Transmission Date: 20150326
  Serious: Yes (Hospitalization, Other)
  Sender: FDA-Public Use
  Company Number: US-009507513-1301USA002305

PATIENT
  Sex: Female
  Weight: 68.48 kg

DRUGS (5)
  1. VITAMINS (UNSPECIFIED) [Concomitant]
     Active Substance: VITAMINS
     Dosage: 1 DF, QD
     Dates: start: 2000
  2. CALCIUM (UNSPECIFIED) (+) VITAMIN D (UNSPECIFIED) [Concomitant]
     Active Substance: CALCIUM CARBONATE\VITAMIN D
     Dosage: 600 MG, QD
     Dates: start: 2000
  3. VITAMIN D [Concomitant]
     Active Substance: CHOLECALCIFEROL
     Dosage: 1000 IU, QD
     Dates: start: 2000
  4. ALENDRONATE SODIUM. [Suspect]
     Active Substance: ALENDRONATE SODIUM
     Dosage: 70 MG, QW
     Route: 048
  5. FOSAMAX [Suspect]
     Active Substance: ALENDRONATE SODIUM
     Indication: OSTEOPOROSIS
     Dosage: 70 MG, QW
     Route: 048
     Dates: start: 200011, end: 2011

REACTIONS (25)
  - Hysterectomy [Unknown]
  - Fibula fracture [Unknown]
  - Renal failure acute [Unknown]
  - Diabetic complication [Unknown]
  - Dehydration [Unknown]
  - Haemorrhagic anaemia [Recovered/Resolved]
  - Intramedullary rod insertion [Unknown]
  - Renal failure [Unknown]
  - Pain in extremity [Unknown]
  - Foot fracture [Unknown]
  - Limb asymmetry [Unknown]
  - Colitis microscopic [Unknown]
  - Bone decalcification [Unknown]
  - Cardiomegaly [Unknown]
  - Constipation [Unknown]
  - Vomiting [Unknown]
  - Femur fracture [Recovered/Resolved]
  - Appendicectomy [Unknown]
  - Hyperparathyroidism secondary [Unknown]
  - Fracture reduction [Unknown]
  - Tibia fracture [Unknown]
  - Asthenia [Unknown]
  - Intramedullary rod insertion [Unknown]
  - Iron deficiency anaemia [Unknown]
  - Tonsillectomy [Unknown]

NARRATIVE: CASE EVENT DATE: 200301
